FAERS Safety Report 8238094-8 (Version None)
Quarter: 2012Q1

REPORT INFORMATION
  Report Type: 
  Country: None (occurrence: None)
  Receive Date: 20120327
  Receipt Date: 20120322
  Transmission Date: 20120608
  Serious: Yes (Hospitalization)
  Sender: FDA-Public Use
  Company Number: JP-GLAXOSMITHKLINE-B0790898A

PATIENT
  Age: 51 Year
  Sex: Female

DRUGS (4)
  1. METHYCOBAL [Concomitant]
     Route: 048
  2. VALTREX [Suspect]
     Indication: HERPES ZOSTER
     Dosage: 3000MG PER DAY
     Route: 048
     Dates: start: 20120312, end: 20120316
  3. LOXONIN [Suspect]
     Route: 048
     Dates: start: 20120312, end: 20120316
  4. MUCOSTA [Concomitant]
     Route: 048

REACTIONS (3)
  - TUBULOINTERSTITIAL NEPHRITIS [None]
  - OEDEMA [None]
  - WEIGHT INCREASED [None]
